FAERS Safety Report 5019397-7 (Version None)
Quarter: 2006Q2

REPORT INFORMATION
  Report Type: 
  Country: None (occurrence: None)
  Receive Date: 20060531
  Receipt Date: 20060519
  Transmission Date: 20061013
  Serious: Yes (Hospitalization, Other)
  Sender: FDA-Public Use
  Company Number: 2006060480

PATIENT
  Age: 68 Year
  Sex: Female
  Weight: 80 kg

DRUGS (11)
  1. LIPITOR [Suspect]
     Indication: HYPERCHOLESTEROLAEMIA
     Dosage: 10 MG (10 MG, 1 IN 1 D), ORAL
     Route: 048
     Dates: start: 20011124, end: 20060502
  2. BLOPRESS (CANDESARTAN CILEXETIL) [Suspect]
     Indication: HYPERTENSION
     Dosage: 8 MG (8 MEQ, 1 IN 1 D), ORAL
     Route: 048
     Dates: start: 20041124, end: 20060502
  3. CARDENALIN (DOXAZOSIN) [Concomitant]
  4. NORVASC [Concomitant]
  5. BASEN (VOGLIBOSE) [Concomitant]
  6. ACTOS [Concomitant]
  7. GLYBURIDE [Concomitant]
  8. ENALAPRIL MALEATE [Concomitant]
  9. INSULIN [Concomitant]
  10. METFORMIN HCL [Concomitant]
  11. HUMALOG [Concomitant]

REACTIONS (8)
  - BLOOD CREATINE PHOSPHOKINASE INCREASED [None]
  - CHROMATURIA [None]
  - CONTUSION [None]
  - FALL [None]
  - MALAISE [None]
  - MYALGIA [None]
  - OEDEMA PERIPHERAL [None]
  - PAIN [None]
